FAERS Safety Report 8047735-X (Version None)
Quarter: 2012Q1

REPORT INFORMATION
  Report Type: 
  Country: None (occurrence: None)
  Receive Date: 20120116
  Receipt Date: 20120103
  Transmission Date: 20120608
  Serious: Yes (Other)
  Sender: FDA-Public Use
  Company Number: IT-TEVA-315950ISR

PATIENT
  Sex: Female

DRUGS (1)
  1. OXALIPLATIN [Suspect]
     Indication: PANCREATIC CARCINOMA RECURRENT
     Dosage: 200 MILLIGRAM;
     Route: 042
     Dates: start: 20111206, end: 20111228

REACTIONS (1)
  - APHASIA [None]
